FAERS Safety Report 21646894 (Version 1)
Quarter: 2022Q4

REPORT INFORMATION
  Report Type: Spontaneous
  Country: IT (occurrence: IT)
  Receive Date: 20221127
  Receipt Date: 20221127
  Transmission Date: 20230113
  Serious: Yes (Other)
  Sender: FDA-Public Use
  Company Number: None

PATIENT
  Age: 67 Year
  Sex: Female
  Weight: 74 kg

DRUGS (5)
  1. OXALIPLATIN [Suspect]
     Active Substance: OXALIPLATIN
     Indication: Colorectal adenocarcinoma
     Dosage: UNIT DOSE: 1147 MG, THERAPY END DATE: NASK
     Route: 065
     Dates: start: 20220617
  2. FLUOROURACIL [Suspect]
     Active Substance: FLUOROURACIL
     Indication: Colorectal adenocarcinoma
     Dosage: UNIT DOSE: 4152 MG, THERAPY END DATE: NASK,
     Route: 065
     Dates: start: 20220617
  3. FLUOROURACIL [Suspect]
     Active Substance: FLUOROURACIL
     Dosage: UNIT DOSE: 692 MG, THERAPY END DATE: NASK
     Route: 065
     Dates: start: 20220617
  4. LEVO FOLINIC ACID [Concomitant]
     Indication: Colorectal adenocarcinoma
     Dosage: UNIT DOSE: 346 MG
  5. FERINJECT [Concomitant]
     Active Substance: FERRIC CARBOXYMALTOSE
     Indication: Product used for unknown indication

REACTIONS (8)
  - Syncope [Recovered/Resolved]
  - Neutropenia [Not Recovered/Not Resolved]
  - Constipation [Recovering/Resolving]
  - Nausea [Recovering/Resolving]
  - Paraesthesia [Recovered/Resolved]
  - Vomiting [Recovered/Resolved]
  - Hypotension [Recovered/Resolved]
  - Blood iron decreased [Recovered/Resolved]

NARRATIVE: CASE EVENT DATE: 20220620
